FAERS Safety Report 5464864-5 (Version None)
Quarter: 2007Q3

REPORT INFORMATION
  Report Type: 
  Country: None (occurrence: None)
  Receive Date: 20070921
  Receipt Date: 20070911
  Transmission Date: 20080115
  Serious: Yes (Other)
  Sender: FDA-Public Use
  Company Number: US-PFIZER INC-2007076091

PATIENT
  Sex: Female

DRUGS (3)
  1. LYRICA [Suspect]
     Indication: NEUROPATHY
  2. ALL OTHER THERAPEUTIC PRODUCTS [Concomitant]
     Indication: PAIN
  3. ALL OTHER THERAPEUTIC PRODUCTS [Concomitant]
     Indication: NEUROPATHY

REACTIONS (6)
  - DIABETES MELLITUS [None]
  - DRY SKIN [None]
  - PAIN [None]
  - RASH [None]
  - UNEVALUABLE EVENT [None]
  - WEIGHT INCREASED [None]
